FAERS Safety Report 8785025 (Version 3)
Quarter: 2012Q4

REPORT INFORMATION
  Report Type: Report from Study
  Country: IT (occurrence: IT)
  Receive Date: 20120914
  Receipt Date: 20121004
  Transmission Date: 20130627
  Serious: Yes (Death, Hospitalization)
  Sender: FDA-Public Use
  Company Number: IT-AMGEN-ITACT2012058237

PATIENT
  Age: 85 Year
  Sex: Male

DRUGS (1)
  1. DENOSUMAB [Suspect]
     Indication: METASTASES TO BONE
     Dosage: 120 mg, UNK
     Dates: start: 20120716, end: 20120716

REACTIONS (2)
  - Pulmonary oedema [Fatal]
  - Hypertensive crisis [Not Recovered/Not Resolved]
